FAERS Safety Report 23137484 (Version 1)
Quarter: 2023Q4

REPORT INFORMATION
  Report Type: Spontaneous
  Country: IT (occurrence: IT)
  Receive Date: 20231102
  Receipt Date: 20231102
  Transmission Date: 20240110
  Serious: Yes (Other)
  Sender: FDA-Public Use
  Company Number: IT-DSJP-DSE-2023-144748

PATIENT
  Age: 69 Year
  Sex: Male
  Weight: 96 kg

DRUGS (1)
  1. EDOXABAN TOSYLATE [Suspect]
     Active Substance: EDOXABAN TOSYLATE
     Indication: Product used for unknown indication
     Dosage: 60 MG
     Route: 065

REACTIONS (2)
  - Sudden visual loss [Unknown]
  - Vitreous haemorrhage [Recovering/Resolving]
